FAERS Safety Report 12450132 (Version 1)
Quarter: 2016Q2

REPORT INFORMATION
  Report Type: Spontaneous
  Country: US (occurrence: US)
  Receive Date: 20160609
  Receipt Date: 20160609
  Transmission Date: 20160815
  Serious: No
  Sender: FDA-Public Use
  Company Number: US-GLENMARK PHARMACEUTICALS INC, USA.-2016GMK022452

PATIENT

DRUGS (1)
  1. HEATHER [Suspect]
     Active Substance: NORETHINDRONE
     Indication: CONTRACEPTION
     Dosage: 0.35 MG, QIB
     Route: 048

REACTIONS (4)
  - Product substitution issue [Unknown]
  - Product packaging quantity issue [Unknown]
  - Menstrual disorder [Unknown]
  - Menstruation delayed [Unknown]
